FAERS Safety Report 21458750 (Version 1)
Quarter: 2022Q4

REPORT INFORMATION
  Report Type: Spontaneous
  Country: BR (occurrence: BR)
  Receive Date: 20221014
  Receipt Date: 20221014
  Transmission Date: 20230113
  Serious: Yes (Other)
  Sender: FDA-Public Use
  Company Number: BR-ABBVIE-4134476

PATIENT
  Sex: Female

DRUGS (1)
  1. RINVOQ [Suspect]
     Active Substance: UPADACITINIB
     Indication: Dermatitis atopic
     Route: 048

REACTIONS (8)
  - Corneal lesion [Not Recovered/Not Resolved]
  - Ocular hyperaemia [Unknown]
  - Furuncle [Unknown]
  - Eye pruritus [Unknown]
  - Eyelid infection [Unknown]
  - Herpes virus infection [Unknown]
  - Herpes ophthalmic [Not Recovered/Not Resolved]
  - Eyelid oedema [Unknown]
